FAERS Safety Report 6789985-6 (Version None)
Quarter: 2010Q2

REPORT INFORMATION
  Report Type: 
  Country: None (occurrence: None)
  Receive Date: 20100624
  Receipt Date: 20100330
  Transmission Date: 20101027
  Serious: Yes (Hospitalization)
  Sender: FDA-Public Use
  Company Number: US-ASTRAZENECA-2006UW04554

PATIENT
  Age: 16144 Day
  Sex: Female
  Weight: 78 kg

DRUGS (26)
  1. SEROQUEL [Suspect]
     Indication: BIPOLAR DISORDER
     Dosage: 200 MG T0 300 MG
     Route: 048
     Dates: start: 20030701, end: 20051201
  2. SEROQUEL [Suspect]
     Indication: BIPOLAR I DISORDER
     Dosage: 200 MG T0 300 MG
     Route: 048
     Dates: start: 20030701, end: 20051201
  3. SEROQUEL [Suspect]
     Dosage: 300MG-600MG
     Route: 048
     Dates: start: 20030701, end: 20060105
  4. SEROQUEL [Suspect]
     Dosage: 300MG-600MG
     Route: 048
     Dates: start: 20030701, end: 20060105
  5. SEROQUEL [Suspect]
     Dosage: 25 -600 MG
     Route: 048
     Dates: start: 20030701
  6. SEROQUEL [Suspect]
     Dosage: 25 -600 MG
     Route: 048
     Dates: start: 20030701
  7. ZYPREXA [Suspect]
     Indication: BIPOLAR DISORDER
     Dosage: 5 MG TO 10 MG
     Dates: start: 20020101, end: 20030101
  8. ZYPREXA [Suspect]
     Indication: SCHIZOPHRENIA
     Dosage: 5 MG TO 10 MG
     Dates: start: 20020101, end: 20030101
  9. EFFEXOR [Concomitant]
  10. TRAZODONE HYDROCHLORIDE [Concomitant]
  11. KLONOPIN [Concomitant]
  12. PROTONIX [Concomitant]
  13. ATIVAN [Concomitant]
  14. CLONAZEPAM [Concomitant]
  15. THIAMINE [Concomitant]
  16. NEURONTIN [Concomitant]
  17. LEXAPRO [Concomitant]
  18. XANAX [Concomitant]
  19. K-DUR [Concomitant]
  20. TYLENOL [Concomitant]
  21. VERSED [Concomitant]
  22. ROCEPHIN [Concomitant]
  23. FOLATE [Concomitant]
  24. GLUCOTROL [Concomitant]
  25. AMBIEN [Concomitant]
  26. WELLBUTRIN [Concomitant]

REACTIONS (31)
  - ABDOMINAL PAIN [None]
  - ATRIAL TACHYCARDIA [None]
  - BIPOLAR DISORDER [None]
  - COUGH [None]
  - DELIRIUM TREMENS [None]
  - DEPRESSION [None]
  - DIABETES MELLITUS [None]
  - DIABETES MELLITUS INADEQUATE CONTROL [None]
  - DIARRHOEA [None]
  - GINGIVAL PAIN [None]
  - HAEMATEMESIS [None]
  - HEPATITIS ALCOHOLIC [None]
  - HEPATITIS C [None]
  - HYPERGLYCAEMIC HYPEROSMOLAR NONKETOTIC SYNDROME [None]
  - HYPERKALAEMIA [None]
  - MENTAL STATUS CHANGES [None]
  - MUSCLE SPASMS [None]
  - NAUSEA [None]
  - NECK PAIN [None]
  - ODYNOPHAGIA [None]
  - PANCREATITIS ACUTE [None]
  - PYREXIA [None]
  - RESPIRATORY FAILURE [None]
  - RHABDOMYOLYSIS [None]
  - SINUSITIS [None]
  - SUICIDE ATTEMPT [None]
  - THERAPEUTIC AGENT TOXICITY [None]
  - THROMBOCYTOPENIA [None]
  - TYPE 1 DIABETES MELLITUS [None]
  - ULCER [None]
  - VOMITING [None]
